FAERS Safety Report 13344081 (Version 1)
Quarter: 2017Q1

REPORT INFORMATION
  Report Type: Spontaneous
  Country: JP (occurrence: JP)
  Receive Date: 20170316
  Receipt Date: 20170316
  Transmission Date: 20170428
  Serious: No
  Sender: FDA-Public Use
  Company Number: JP-ELI_LILLY_AND_COMPANY-JP201703005851

PATIENT
  Age: 40 Year
  Sex: Female

DRUGS (2)
  1. CYMBALTA [Suspect]
     Active Substance: DULOXETINE HYDROCHLORIDE
     Indication: RAYNAUD^S PHENOMENON
     Dosage: 20 MG, QD
     Route: 048
     Dates: start: 201703, end: 201703
  2. PREDONINE [Concomitant]
     Active Substance: PREDNISOLONE
     Indication: RAYNAUD^S PHENOMENON
     Route: 048

REACTIONS (2)
  - Off label use [Recovered/Resolved]
  - Hepatic function abnormal [Unknown]

NARRATIVE: CASE EVENT DATE: 201703
